FAERS Safety Report 23524544 (Version 2)
Quarter: 2024Q1

REPORT INFORMATION
  Report Type: Spontaneous
  Country: CA (occurrence: CA)
  Receive Date: 20240214
  Receipt Date: 20240320
  Transmission Date: 20240410
  Serious: Yes (Other)
  Sender: FDA-Public Use
  Company Number: CA-002147023-PHHY2016CA107522

PATIENT
  Age: 53 Year
  Sex: Female
  Weight: 53 kg

DRUGS (85)
  1. BACLOFEN [Suspect]
     Active Substance: BACLOFEN
     Indication: Product used for unknown indication
     Dosage: UNK
     Route: 065
  2. CARBAMAZEPINE [Suspect]
     Active Substance: CARBAMAZEPINE
     Indication: Product used for unknown indication
     Dosage: UNK
     Route: 065
  3. CITALOPRAM [Suspect]
     Active Substance: CITALOPRAM\CITALOPRAM HYDROBROMIDE
     Indication: Product used for unknown indication
     Dosage: UNK
     Route: 065
  4. CLARITHROMYCIN [Suspect]
     Active Substance: CLARITHROMYCIN
     Indication: Product used for unknown indication
     Dosage: UNK
     Route: 065
  5. CODEINE PHOSPHATE [Suspect]
     Active Substance: CODEINE PHOSPHATE
     Indication: Product used for unknown indication
     Dosage: UNK
     Route: 065
  6. CLONAZEPAM [Suspect]
     Active Substance: CLONAZEPAM
     Indication: Product used for unknown indication
     Dosage: UNK
     Route: 048
  7. OMALIZUMAB [Suspect]
     Active Substance: OMALIZUMAB
     Dosage: 150 MG
     Route: 058
  8. OMALIZUMAB [Suspect]
     Active Substance: OMALIZUMAB
     Indication: Chronic spontaneous urticaria
     Dosage: 150 MG, 1 EVERY 3 WEEKS
     Route: 058
  9. OMALIZUMAB [Suspect]
     Active Substance: OMALIZUMAB
     Dosage: 150 MG, 1 EVERY 3 WEEKS
     Route: 058
  10. OMALIZUMAB [Suspect]
     Active Substance: OMALIZUMAB
     Dosage: 150 MG, 1 EVERY 3 WEEKS
     Route: 058
  11. OMALIZUMAB [Suspect]
     Active Substance: OMALIZUMAB
     Dosage: 150 MG, 1 EVERY 3 WEEKS
     Route: 058
  12. OMALIZUMAB [Suspect]
     Active Substance: OMALIZUMAB
     Dosage: 150 MG, 1 EVERY 3 WEEKS
     Route: 058
  13. OMALIZUMAB [Suspect]
     Active Substance: OMALIZUMAB
     Dosage: 150 MG, 1 EVERY 3 WEEKS
     Route: 058
  14. OMALIZUMAB [Suspect]
     Active Substance: OMALIZUMAB
     Dosage: 150 MG, 1 EVERY 3 WEEKS
     Route: 058
  15. OMALIZUMAB [Suspect]
     Active Substance: OMALIZUMAB
     Dosage: 150 MG, 1 EVERY 3 WEEKS
     Route: 058
  16. OMALIZUMAB [Suspect]
     Active Substance: OMALIZUMAB
     Dosage: 150 MG, 1 EVERY 3 WEEKS
     Route: 058
  17. OMALIZUMAB [Suspect]
     Active Substance: OMALIZUMAB
     Dosage: 150 MG, 1 EVERY 4 WEEKS
     Route: 058
  18. OMALIZUMAB [Suspect]
     Active Substance: OMALIZUMAB
     Dosage: 150 MG, 1 EVERY 4 WEEKS
     Route: 058
  19. OMALIZUMAB [Suspect]
     Active Substance: OMALIZUMAB
     Dosage: 300 MG
     Route: 058
  20. OMALIZUMAB [Suspect]
     Active Substance: OMALIZUMAB
     Dosage: 300 MG, EVERY 3 WEEKS
     Route: 058
  21. OMALIZUMAB [Suspect]
     Active Substance: OMALIZUMAB
     Dosage: 300 MG, EVERY 4 WEEKS
     Route: 058
  22. OMALIZUMAB [Suspect]
     Active Substance: OMALIZUMAB
     Dosage: 600 MG
     Route: 058
  23. OMALIZUMAB [Suspect]
     Active Substance: OMALIZUMAB
     Dosage: UNK
     Route: 058
  24. OMALIZUMAB [Suspect]
     Active Substance: OMALIZUMAB
     Dosage: UNK
     Route: 058
  25. OMALIZUMAB [Suspect]
     Active Substance: OMALIZUMAB
     Dosage: UNK
     Route: 058
  26. OMALIZUMAB [Suspect]
     Active Substance: OMALIZUMAB
     Dosage: UNK
     Route: 058
  27. OMALIZUMAB [Suspect]
     Active Substance: OMALIZUMAB
     Dosage: UNK
     Route: 058
  28. OMALIZUMAB [Suspect]
     Active Substance: OMALIZUMAB
     Dosage: UNK
     Route: 058
  29. OMALIZUMAB [Suspect]
     Active Substance: OMALIZUMAB
     Dosage: UNK
     Route: 058
  30. OMALIZUMAB [Suspect]
     Active Substance: OMALIZUMAB
     Dosage: UNK
     Route: 058
  31. OMALIZUMAB [Suspect]
     Active Substance: OMALIZUMAB
     Dosage: UNK
     Route: 058
  32. OMALIZUMAB [Suspect]
     Active Substance: OMALIZUMAB
     Dosage: UNK
     Route: 058
  33. VANCOMYCIN [Suspect]
     Active Substance: VANCOMYCIN
     Indication: Product used for unknown indication
     Dosage: UNK
     Route: 065
  34. XOLAIR [Suspect]
     Active Substance: OMALIZUMAB
     Dosage: 150 MG, EVERY 3 WEEKS
     Route: 058
     Dates: start: 20180822
  35. XOLAIR [Suspect]
     Active Substance: OMALIZUMAB
     Dosage: 150 MG, EVERY 3 WEEKS
     Route: 058
     Dates: start: 20200123
  36. XOLAIR [Suspect]
     Active Substance: OMALIZUMAB
     Dosage: 150 MG, EVERY 3 WEEKS
     Route: 058
  37. XOLAIR [Suspect]
     Active Substance: OMALIZUMAB
     Dosage: 150 MG, EVERY 3 WEEKS
     Route: 058
  38. XOLAIR [Suspect]
     Active Substance: OMALIZUMAB
     Dosage: 150 MG, ONCE EVERY 3 WEEKS
     Route: 058
  39. XOLAIR [Suspect]
     Active Substance: OMALIZUMAB
     Dosage: 150 MG, EVERY 4 WEEKS
     Route: 058
  40. XOLAIR [Suspect]
     Active Substance: OMALIZUMAB
     Indication: Chronic spontaneous urticaria
     Dosage: 150 MG, EVERY 3 WEEKS
     Route: 058
     Dates: start: 20160531
  41. XOLAIR [Suspect]
     Active Substance: OMALIZUMAB
     Dosage: UNK
     Route: 058
     Dates: start: 20160628
  42. XOLAIR [Suspect]
     Active Substance: OMALIZUMAB
     Dosage: UNK
     Route: 058
     Dates: start: 20160906
  43. XOLAIR [Suspect]
     Active Substance: OMALIZUMAB
     Dosage: UNK
     Route: 058
     Dates: start: 20170118
  44. XOLAIR [Suspect]
     Active Substance: OMALIZUMAB
     Dosage: UNK
     Route: 058
     Dates: start: 20161025
  45. XOLAIR [Suspect]
     Active Substance: OMALIZUMAB
     Dosage: UNK
     Route: 058
     Dates: start: 20161130
  46. XOLAIR [Suspect]
     Active Substance: OMALIZUMAB
     Dosage: UNK
     Route: 058
     Dates: start: 20161228
  47. XOLAIR [Suspect]
     Active Substance: OMALIZUMAB
     Dosage: UNK
     Route: 058
     Dates: start: 20170816
  48. XOLAIR [Suspect]
     Active Substance: OMALIZUMAB
     Dosage: 300 MG, UNK
     Route: 058
     Dates: start: 20170920
  49. XOLAIR [Suspect]
     Active Substance: OMALIZUMAB
     Dosage: UNK
     Route: 058
     Dates: start: 20171122
  50. XOLAIR [Suspect]
     Active Substance: OMALIZUMAB
     Dosage: UNK
     Route: 058
     Dates: start: 20171213
  51. XOLAIR [Suspect]
     Active Substance: OMALIZUMAB
     Dosage: UNK
     Route: 058
     Dates: start: 20180110
  52. XOLAIR [Suspect]
     Active Substance: OMALIZUMAB
     Dosage: 150 MG
     Route: 058
  53. XOLAIR [Suspect]
     Active Substance: OMALIZUMAB
     Dosage: 150 MG, 1 EVERY 3 WEEKS
     Route: 058
  54. XOLAIR [Suspect]
     Active Substance: OMALIZUMAB
     Dosage: 150 MG, 1 EVERY 3 WEEKS
     Route: 058
  55. XOLAIR [Suspect]
     Active Substance: OMALIZUMAB
     Dosage: 150 MG, 1 EVERY 3 WEEKS
     Route: 058
  56. XOLAIR [Suspect]
     Active Substance: OMALIZUMAB
     Dosage: 150 MG, 1 EVERY 3 WEEKS
     Route: 058
  57. XOLAIR [Suspect]
     Active Substance: OMALIZUMAB
     Dosage: 150 MG, 1 EVERY 3 WEEKS
     Route: 058
  58. XOLAIR [Suspect]
     Active Substance: OMALIZUMAB
     Dosage: 150 MG, 1 EVERY 3 WEEKS
     Route: 058
  59. XOLAIR [Suspect]
     Active Substance: OMALIZUMAB
     Dosage: 150 MG, 1 EVERY 3 WEEKS
     Route: 058
  60. XOLAIR [Suspect]
     Active Substance: OMALIZUMAB
     Dosage: 150 MG, 1 EVERY 3 WEEKS
     Route: 058
  61. XOLAIR [Suspect]
     Active Substance: OMALIZUMAB
     Dosage: 150 MG, 1 EVERY 3 WEEKS
     Route: 058
  62. XOLAIR [Suspect]
     Active Substance: OMALIZUMAB
     Dosage: 150 MG, EVERY 3 WEEKS
     Route: 058
     Dates: start: 20170227
  63. XOLAIR [Suspect]
     Active Substance: OMALIZUMAB
     Dosage: 150 MG, EVERY 3 WEEKS
     Route: 058
  64. XOLAIR [Suspect]
     Active Substance: OMALIZUMAB
     Dosage: 150 MG, EVERY 3 WEEKS
     Route: 058
  65. XOLAIR [Suspect]
     Active Substance: OMALIZUMAB
     Indication: Chronic spontaneous urticaria
     Dosage: 150 MG, EVERY 3 WEEKS
     Route: 058
     Dates: start: 20160531
  66. XOLAIR [Suspect]
     Active Substance: OMALIZUMAB
     Dosage: 150 MG, EVERY 3 WEEKS
     Route: 058
     Dates: start: 20190220
  67. XOLAIR [Suspect]
     Active Substance: OMALIZUMAB
     Dosage: 150 MG, EVERY 3 WEEKS
     Route: 058
     Dates: start: 20190626
  68. XOLAIR [Suspect]
     Active Substance: OMALIZUMAB
     Dosage: 300 MG, IN PRE-FILLED SYRINGE
     Route: 058
     Dates: start: 20240214
  69. XOLAIR [Suspect]
     Active Substance: OMALIZUMAB
     Dosage: 300 MG
     Route: 058
  70. XOLAIR [Suspect]
     Active Substance: OMALIZUMAB
     Dosage: 300 MG, EVERY 3 WEEKS
     Route: 065
  71. XOLAIR [Suspect]
     Active Substance: OMALIZUMAB
     Dosage: 300 MG, EVERY 4 WEEKS
     Route: 058
  72. XOLAIR [Suspect]
     Active Substance: OMALIZUMAB
     Dosage: 300 MG, EVERY 4 WEEKS
     Route: 058
  73. XOLAIR [Suspect]
     Active Substance: OMALIZUMAB
     Dosage: 300 MG, EVERY 4 WEEKS
     Route: 058
  74. XOLAIR [Suspect]
     Active Substance: OMALIZUMAB
     Dosage: 600 MG
     Route: 058
  75. XOLAIR [Suspect]
     Active Substance: OMALIZUMAB
     Dosage: 600 MG
     Route: 065
     Dates: start: 20221110
  76. XOLAIR [Suspect]
     Active Substance: OMALIZUMAB
     Indication: Chronic spontaneous urticaria
     Dosage: UNK
     Route: 058
  77. XOLAIR [Suspect]
     Active Substance: OMALIZUMAB
     Dosage: UNK
     Route: 058
  78. XOLAIR [Suspect]
     Active Substance: OMALIZUMAB
     Dosage: UNK
     Route: 058
  79. XOLAIR [Suspect]
     Active Substance: OMALIZUMAB
     Dosage: UNK
     Route: 058
  80. XOLAIR [Suspect]
     Active Substance: OMALIZUMAB
     Dosage: UNK
     Route: 058
  81. XOLAIR [Suspect]
     Active Substance: OMALIZUMAB
     Dosage: UNK
     Route: 058
  82. XOLAIR [Suspect]
     Active Substance: OMALIZUMAB
     Dosage: UNK
     Route: 058
  83. XOLAIR [Suspect]
     Active Substance: OMALIZUMAB
     Dosage: UNK
     Route: 058
  84. XOLAIR [Suspect]
     Active Substance: OMALIZUMAB
     Dosage: UNK
     Route: 058
  85. Reactine [Concomitant]
     Indication: Product used for unknown indication
     Dosage: UNK, PRN
     Route: 065

REACTIONS (29)
  - Lower respiratory tract infection [Not Recovered/Not Resolved]
  - Lower respiratory tract infection [Not Recovered/Not Resolved]
  - Heart rate increased [Not Recovered/Not Resolved]
  - Respiratory tract congestion [Not Recovered/Not Resolved]
  - Rhinorrhoea [Not Recovered/Not Resolved]
  - Cough [Not Recovered/Not Resolved]
  - Weight decreased [Not Recovered/Not Resolved]
  - Migraine [Not Recovered/Not Resolved]
  - Ear infection [Not Recovered/Not Resolved]
  - Hypoacusis [Not Recovered/Not Resolved]
  - Oropharyngeal pain [Not Recovered/Not Resolved]
  - Oropharyngeal pain [Not Recovered/Not Resolved]
  - Pyrexia [Not Recovered/Not Resolved]
  - Illness [Not Recovered/Not Resolved]
  - Influenza [Not Recovered/Not Resolved]
  - Oral herpes [Not Recovered/Not Resolved]
  - Fatigue [Not Recovered/Not Resolved]
  - Nasal congestion [Not Recovered/Not Resolved]
  - Dry eye [Not Recovered/Not Resolved]
  - Back pain [Not Recovered/Not Resolved]
  - Nasopharyngitis [Not Recovered/Not Resolved]
  - Urticaria [Not Recovered/Not Resolved]
  - Weight increased [Not Recovered/Not Resolved]
  - Diarrhoea [Not Recovered/Not Resolved]
  - Drug hypersensitivity [Not Recovered/Not Resolved]
  - Inappropriate schedule of product administration [Not Recovered/Not Resolved]
  - Incorrect dose administered [Not Recovered/Not Resolved]
  - Sunburn [Unknown]
  - Injection site bruising [Recovered/Resolved]

NARRATIVE: CASE EVENT DATE: 20160802
